FAERS Safety Report 7413001-6 (Version None)
Quarter: 2011Q2

REPORT INFORMATION
  Report Type: 
  Country: None (occurrence: None)
  Receive Date: 20110413
  Receipt Date: 20110405
  Transmission Date: 20111010
  Serious: Yes (Life-Threatening, Hospitalization, Disabling)
  Sender: FDA-Public Use
  Company Number: GXBR2011US01309

PATIENT
  Sex: Female

DRUGS (1)
  1. AMOXICILLIN CAPSULES, USP [Suspect]
     Dosage: 500 MG, UNK
     Route: 048
     Dates: start: 20090306

REACTIONS (2)
  - TOXIC EPIDERMAL NECROLYSIS [None]
  - ORGAN FAILURE [None]
